FAERS Safety Report 7511333-4 (Version None)
Quarter: 2011Q2

REPORT INFORMATION
  Report Type: 
  Country: None (occurrence: None)
  Receive Date: 20110531
  Receipt Date: 20110120
  Transmission Date: 20111010
  Serious: Yes (Hospitalization)
  Sender: FDA-Public Use
  Company Number: US-BAYER-201038128NA

PATIENT
  Age: 26 Year
  Sex: Female
  Weight: 53.968 kg

DRUGS (5)
  1. NEPARIN [Concomitant]
     Dosage: UNK
     Dates: start: 20070101
  2. YAZ [Suspect]
     Indication: ACNE
     Dosage: UNK
     Route: 048
     Dates: start: 20050101, end: 20100101
  3. VICODIN [Concomitant]
     Indication: CONTUSION
     Dosage: UNK
     Dates: start: 20070801
  4. NIFEDIPINE [Concomitant]
     Indication: CONTUSION
     Dosage: UNK
     Dates: start: 20070801
  5. NAPROXEN [Concomitant]
     Indication: BACK DISORDER
     Dosage: UNK
     Dates: start: 20070101

REACTIONS (4)
  - BACK PAIN [None]
  - THROMBOSIS [None]
  - HEADACHE [None]
  - PERIPHERAL ISCHAEMIA [None]
